FAERS Safety Report 6268209-2 (Version None)
Quarter: 2009Q3

REPORT INFORMATION
  Report Type: 
  Country: None (occurrence: None)
  Receive Date: 20090714
  Receipt Date: 20090714
  Transmission Date: 20100115
  Serious: Yes (Other)
  Sender: FDA-Public Use
  Company Number: None

PATIENT
  Age: 24 Year
  Sex: Female
  Weight: 66.6788 kg

DRUGS (1)
  1. APRI BARR [Suspect]
     Indication: CONTRACEPTION
     Dosage: 1 QD PO
     Route: 048
     Dates: start: 20080829, end: 20090309

REACTIONS (2)
  - AMENORRHOEA [None]
  - RASH [None]
